FAERS Safety Report 15997261 (Version 4)
Quarter: 2019Q4

REPORT INFORMATION
  Report Type: Report from Study
  Country: DE (occurrence: DE)
  Receive Date: 20190222
  Receipt Date: 20191118
  Transmission Date: 20200122
  Serious: Yes (Hospitalization)
  Sender: FDA-Public Use
  Company Number: DE-BIOGEN-2019BI00698976

PATIENT
  Age: 53 Year
  Sex: Female

DRUGS (1)
  1. TECFIDERA [Suspect]
     Active Substance: DIMETHYL FUMARATE
     Indication: MULTIPLE SCLEROSIS
     Dosage: MAINTENANCE DOSE
     Route: 050
     Dates: start: 20160821

REACTIONS (6)
  - Postoperative wound complication [Recovered/Resolved]
  - Radiation injury [Recovered/Resolved]
  - Nasopharyngitis [Recovered/Resolved]
  - Suture rupture [Recovered/Resolved]
  - Breast neoplasm [Recovered/Resolved with Sequelae]
  - Seroma [Recovered/Resolved]

NARRATIVE: CASE EVENT DATE: 20190108
